FAERS Safety Report 14243582 (Version 1)
Quarter: 2017Q4

REPORT INFORMATION
  Report Type: Spontaneous
  Country: GB (occurrence: GB)
  Receive Date: 20171201
  Receipt Date: 20171201
  Transmission Date: 20180321
  Serious: Yes (Other)
  Sender: FDA-Public Use
  Company Number: GB-BIOVITRUM-2017GB1109

PATIENT
  Age: 16 Year
  Sex: Male

DRUGS (3)
  1. ORFADIN [Suspect]
     Active Substance: NITISINONE
     Indication: TYROSINAEMIA
     Dosage: 30 MG AM
  2. ORFADIN [Suspect]
     Active Substance: NITISINONE
     Dosage: 40 MG NOCTE
  3. TYRCOOLER 20 [Concomitant]
     Dosage: 3 OF TYRCOOLER 20 SUPPLEMENTS PER DAY

REACTIONS (4)
  - Speech disorder [Unknown]
  - Memory impairment [Unknown]
  - Motor dysfunction [Unknown]
  - Executive dysfunction [Unknown]
